FAERS Safety Report 5116342-0 (Version None)
Quarter: 2006Q3

REPORT INFORMATION
  Report Type: 
  Country: None (occurrence: None)
  Receive Date: 20060927
  Receipt Date: 20060518
  Transmission Date: 20061208
  Serious: Yes (Death, Other)
  Sender: FDA-Public Use
  Company Number: FR-ABBOTT-06P-056-0333722-00

PATIENT
  Age: 76 Year
  Sex: Female

DRUGS (3)
  1. VALPROATE SODIUM [Suspect]
     Indication: DRUG USE FOR UNKNOWN INDICATION
     Route: 065
     Dates: start: 20060101, end: 20060101
  2. TIAPRIDE [Concomitant]
     Indication: DEMENTIA
     Route: 065
  3. PRAZEPAM [Concomitant]
     Indication: DEMENTIA
     Route: 048

REACTIONS (6)
  - COMA [None]
  - DECUBITUS ULCER [None]
  - DRUG TOXICITY [None]
  - ILL-DEFINED DISORDER [None]
  - OVERDOSE [None]
  - SKIN ULCER [None]
